FAERS Safety Report 8465432-3 (Version None)
Quarter: 2012Q2

REPORT INFORMATION
  Report Type: 
  Country: None (occurrence: None)
  Receive Date: 20120626
  Receipt Date: 20120619
  Transmission Date: 20120825
  Serious: Yes (Other)
  Sender: FDA-Public Use
  Company Number: PHHY2012FR051495

PATIENT
  Sex: Male
  Weight: 92 kg

DRUGS (1)
  1. EVEROLIMUS [Suspect]
     Indication: RENAL CANCER METASTATIC
     Dosage: 5 MG, DAILY
     Route: 048
     Dates: start: 20111110, end: 20111115

REACTIONS (3)
  - ANGINA PECTORIS [None]
  - CARDIOTOXICITY [None]
  - CHEST PAIN [None]
